FAERS Safety Report 26122435 (Version 2)
Quarter: 2025Q4

REPORT INFORMATION
  Report Type: Spontaneous
  Country: EU (occurrence: EU)
  Receive Date: 20251204
  Receipt Date: 20251218
  Transmission Date: 20260118
  Serious: Yes (Death, Hospitalization)
  Sender: TEVA
  Company Number: EU-TEVA-VS-3397729

PATIENT
  Age: 77 Year
  Sex: Male

DRUGS (10)
  1. VINCRISTINE [Suspect]
     Active Substance: VINCRISTINE
     Indication: Diffuse large B-cell lymphoma
     Dosage: RECEIVED 6 CYCLES
     Route: 065
     Dates: start: 202003, end: 202007
  2. RITUXIMAB [Suspect]
     Active Substance: RITUXIMAB
     Indication: Diffuse large B-cell lymphoma
     Dosage: RECEIVED 6 CYCLES
     Route: 065
     Dates: start: 202003, end: 202007
  3. RITUXIMAB [Suspect]
     Active Substance: RITUXIMAB
     Indication: Diffuse large B-cell lymphoma
     Dosage: RECEIVED 5 CYCLES
     Route: 065
     Dates: start: 2017, end: 2017
  4. VORICONAZOLE [Suspect]
     Active Substance: VORICONAZOLE
     Indication: Bronchopulmonary aspergillosis
     Route: 065
     Dates: start: 20220503
  5. ACALABRUTINIB [Suspect]
     Active Substance: ACALABRUTINIB
     Indication: Diffuse large B-cell lymphoma
     Route: 065
     Dates: start: 20220325, end: 20220503
  6. OBINUTUZUMAB [Suspect]
     Active Substance: OBINUTUZUMAB
     Indication: Diffuse large B-cell lymphoma
     Route: 065
     Dates: start: 20220325
  7. BENDAMUSTINE [Suspect]
     Active Substance: BENDAMUSTINE
     Indication: Chronic lymphocytic leukaemia
     Dosage: RECEIVED 5 CYCLES
     Route: 065
     Dates: start: 2017, end: 2017
  8. PREDNISONE [Suspect]
     Active Substance: PREDNISONE
     Indication: Diffuse large B-cell lymphoma
     Dosage: RECEIVED 6 CYCLES
     Route: 065
     Dates: start: 202003, end: 202007
  9. CYCLOPHOSPHAMIDE [Suspect]
     Active Substance: CYCLOPHOSPHAMIDE
     Indication: Diffuse large B-cell lymphoma
     Dosage: RECEIVED 6 CYCLES
     Route: 065
     Dates: start: 202003, end: 202007
  10. DOXORUBICIN [Suspect]
     Active Substance: DOXORUBICIN
     Indication: Diffuse large B-cell lymphoma
     Dosage: RECEIVED 6 CYCLES
     Route: 065
     Dates: start: 202003, end: 202007

REACTIONS (4)
  - Bronchopulmonary aspergillosis [Fatal]
  - Drug ineffective [Fatal]
  - Cerebral aspergillosis [Fatal]
  - Aspergillus infection [Fatal]

NARRATIVE: CASE EVENT DATE: 20220408
